FAERS Safety Report 7678239-1 (Version None)
Quarter: 2011Q3

REPORT INFORMATION
  Report Type: 
  Country: None (occurrence: None)
  Receive Date: 20110811
  Receipt Date: 20110809
  Transmission Date: 20111222
  Serious: Yes (Hospitalization, Other)
  Sender: FDA-Public Use
  Company Number: US-BAYER-2011-071147

PATIENT
  Sex: Female

DRUGS (7)
  1. PLAVIX [Concomitant]
  2. LYRICA [Concomitant]
  3. LISINOPRIL [Concomitant]
  4. INSULIN [Concomitant]
  5. AVELOX [Suspect]
     Indication: CELLULITIS
     Dosage: 400 MG, QD
     Route: 048
     Dates: start: 20110601
  6. SPIROLAKTON [Concomitant]
  7. MIRAPEX [Concomitant]

REACTIONS (2)
  - MUSCLE SPASMS [None]
  - TREMOR [None]
